FAERS Safety Report 18808824 (Version 1)
Quarter: 2021Q1

REPORT INFORMATION
  Report Type: Report from Study
  Country: None (occurrence: HU)
  Receive Date: 20210129
  Receipt Date: 20210129
  Transmission Date: 20210419
  Serious: Yes (Death, Hospitalization, Other)
  Sender: FDA-Public Use
  Company Number: HU-ABBVIE-20K-076-3668984-00

PATIENT
  Sex: Male

DRUGS (4)
  1. CORBILTA [Concomitant]
     Active Substance: CARBIDOPA\ENTACAPONE\LEVODOPA
     Indication: PARKINSON^S DISEASE
     Dosage: 50 MG LEVODOPA, 12.5MG CARBIDOPA 200 MG OF ENTACAPONE PER TABLET?1 TABLET AFTER MIDNIGHT
     Route: 048
  2. DUODOPA [Suspect]
     Active Substance: CARBIDOPA\LEVODOPA
  3. FINASTERIDE. [Concomitant]
     Active Substance: FINASTERIDE
     Indication: BENIGN PROSTATIC HYPERPLASIA
     Dosage: ONE TABLET AT MORNING
     Route: 048
     Dates: start: 20200331
  4. DUODOPA [Suspect]
     Active Substance: CARBIDOPA\LEVODOPA
     Indication: PARKINSON^S DISEASE
     Dosage: MORNING DOSE: 11 ML; CONTINUOUS DOSE: 3.3 ML/HOUR; EXTRA DOSE: 2.0 ML
     Route: 050
     Dates: start: 20160303, end: 20201203

REACTIONS (9)
  - Pneumonia [Unknown]
  - Mobility decreased [Not Recovered/Not Resolved]
  - COVID-19 [Unknown]
  - Confusional state [Recovered/Resolved]
  - Death [Fatal]
  - Hyperkinesia [Not Recovered/Not Resolved]
  - Fall [Unknown]
  - Hospitalisation [Unknown]
  - General physical health deterioration [Unknown]

NARRATIVE: CASE EVENT DATE: 20201113
